FAERS Safety Report 9856983 (Version 1)
Quarter: 2014Q1

REPORT INFORMATION
  Report Type: Spontaneous
  Country: GR (occurrence: GR)
  Receive Date: 20140130
  Receipt Date: 20140130
  Transmission Date: 20141002
  Serious: Yes (Hospitalization, Other)
  Sender: FDA-Public Use
  Company Number: PHHY2014GR008635

PATIENT
  Age: 44 Year
  Sex: Female

DRUGS (4)
  1. MYCOPHENOLATE MOFETIL [Suspect]
     Indication: IMMUNOSUPPRESSION
  2. METHYLPREDNISOLONE [Suspect]
     Indication: IMMUNOSUPPRESSION
  3. TACROLIMUS [Suspect]
     Indication: IMMUNOSUPPRESSION
  4. PREZOLON [Concomitant]
     Dosage: .5 MG, UNK

REACTIONS (8)
  - Encephalitis viral [Recovered/Resolved]
  - Meningitis viral [Recovered/Resolved]
  - Headache [Recovered/Resolved]
  - Somnolence [Recovered/Resolved]
  - Nuchal rigidity [Recovered/Resolved]
  - Pyrexia [Recovered/Resolved]
  - Hearing impaired [Recovered/Resolved]
  - Encephalopathy [Recovered/Resolved]
